FAERS Safety Report 17588983 (Version 1)
Quarter: 2020Q1

REPORT INFORMATION
  Report Type: Spontaneous
  Country: JP (occurrence: JP)
  Receive Date: 20200327
  Receipt Date: 20200327
  Transmission Date: 20200409
  Serious: Yes (Death, Other)
  Sender: FDA-Public Use
  Company Number: JP-GLAXOSMITHKLINE-JP2020JPN045252

PATIENT
  Age: 7 Decade
  Sex: Female

DRUGS (3)
  1. VOLIBRIS [Suspect]
     Active Substance: AMBRISENTAN
     Indication: PULMONARY ARTERIAL HYPERTENSION
     Dosage: 2.5 MG, QD
     Route: 048
     Dates: start: 202003, end: 20200316
  2. FLOLAN [Suspect]
     Active Substance: EPOPROSTENOL SODIUM
     Dosage: 10 NG/KG/MIN
     Route: 042
     Dates: end: 20200316
  3. FLOLAN [Suspect]
     Active Substance: EPOPROSTENOL SODIUM
     Indication: PULMONARY ARTERIAL HYPERTENSION
     Dosage: 2 NG/KG/MIN
     Route: 042
     Dates: start: 20200311

REACTIONS (3)
  - Death [Fatal]
  - Prescribed underdose [Unknown]
  - Product use issue [Unknown]

NARRATIVE: CASE EVENT DATE: 202003
